FAERS Safety Report 5999165-X (Version None)
Quarter: 2008Q4

REPORT INFORMATION
  Report Type: 
  Country: None (occurrence: None)
  Receive Date: 20081211
  Receipt Date: 20081126
  Transmission Date: 20090506
  Serious: Yes (Hospitalization)
  Sender: FDA-Public Use
  Company Number: KV200800844

PATIENT
  Age: 74 Year
  Sex: Female

DRUGS (2)
  1. ISOSORBIDE MONONITRATE [Suspect]
     Indication: CHEST PAIN
     Dosage: 60 MG, BID, ORAL
     Route: 048
  2. COUMADIN [Concomitant]

REACTIONS (6)
  - DISORIENTATION [None]
  - DIZZINESS [None]
  - HEPATIC CYST [None]
  - PRODUCT QUALITY ISSUE [None]
  - RENAL CYST [None]
  - SYNCOPE [None]
